FAERS Safety Report 5136309-6 (Version None)
Quarter: 2006Q4

REPORT INFORMATION
  Report Type: 
  Country: None (occurrence: None)
  Receive Date: 20061027
  Receipt Date: 20061017
  Transmission Date: 20070319
  Serious: Yes (Hospitalization)
  Sender: FDA-Public Use
  Company Number: US-GLAXOSMITHKLINE-B0442832A

PATIENT
  Age: 44 Year
  Sex: Female
  Weight: 70 kg

DRUGS (6)
  1. GW679769 [Suspect]
     Dosage: 150MG CYCLIC
     Route: 048
     Dates: start: 20061010
  2. ZOFRAN [Suspect]
     Dosage: 8MG CYCLIC
     Route: 048
     Dates: start: 20061010
  3. DEXAMETHASONE [Suspect]
     Dosage: 8MG CYCLIC
     Route: 042
     Dates: start: 20061010
  4. METFORMIN HCL [Concomitant]
  5. GLIPIZIDE [Concomitant]
  6. PRANDIN [Concomitant]

REACTIONS (3)
  - ABDOMINAL PAIN UPPER [None]
  - NAUSEA [None]
  - VOMITING [None]
